FAERS Safety Report 12711312 (Version 1)
Quarter: 2016Q3

REPORT INFORMATION
  Report Type: Spontaneous
  Country: AM (occurrence: AM)
  Receive Date: 20160902
  Receipt Date: 20160902
  Transmission Date: 20161109
  Serious: Yes (Death, Life-Threatening)
  Sender: FDA-Public Use
  Company Number: AM-ROCHE-1823594

PATIENT
  Age: 58 Year
  Sex: Female

DRUGS (1)
  1. XELODA [Suspect]
     Active Substance: CAPECITABINE
     Indication: COLORECTAL CANCER
     Dosage: 2 TIMES DAILY
     Route: 048
     Dates: start: 20160801, end: 20160823

REACTIONS (4)
  - Diarrhoea [Not Recovered/Not Resolved]
  - Blood pressure decreased [Fatal]
  - Neutropenia [Fatal]
  - Leukopenia [Fatal]

NARRATIVE: CASE EVENT DATE: 20160820
